FAERS Safety Report 5330943-6 (Version None)
Quarter: 2007Q2

REPORT INFORMATION
  Report Type: 
  Country: None (occurrence: None)
  Receive Date: 20070522
  Receipt Date: 20070508
  Transmission Date: 20071010
  Serious: Yes (Other)
  Sender: FDA-Public Use
  Company Number: AU-AMGEN-US223683

PATIENT
  Age: 49 Year
  Sex: Female

DRUGS (6)
  1. NEULASTA [Suspect]
     Indication: CHEMOTHERAPY
     Route: 058
  2. DOXORUBICIN HCL [Suspect]
     Route: 065
  3. NEUPOGEN [Concomitant]
     Indication: CHEMOTHERAPY
     Route: 065
  4. CYCLOPHOSPHAMIDE [Concomitant]
     Route: 065
  5. PACLITAXEL [Concomitant]
     Route: 065
  6. IRBESARTAN [Concomitant]
     Route: 065

REACTIONS (1)
  - PALMAR-PLANTAR ERYTHRODYSAESTHESIA SYNDROME [None]
